FAERS Safety Report 8281076-0 (Version None)
Quarter: 2012Q2

REPORT INFORMATION
  Report Type: 
  Country: None (occurrence: None)
  Receive Date: 20120412
  Receipt Date: 20120411
  Transmission Date: 20120825
  Serious: Yes (Other)
  Sender: FDA-Public Use
  Company Number: DE-AMGEN-DEUSP2012022819

PATIENT
  Age: 50 Year
  Sex: Female

DRUGS (2)
  1. NEULASTA [Suspect]
     Indication: CHEMOTHERAPY
     Route: 065
  2. ANTINEOPLASTIC AGENTS [Concomitant]
     Indication: BREAST CANCER
     Dosage: UNK UNK, QCYCLE

REACTIONS (2)
  - METASTASES TO BONE [None]
  - LUNG DISORDER [None]
